FAERS Safety Report 9895934 (Version 2)
Quarter: 2014Q1

REPORT INFORMATION
  Report Type: Spontaneous
  Country: US (occurrence: US)
  Receive Date: 20140213
  Receipt Date: 20140317
  Transmission Date: 20141002
  Serious: No
  Sender: FDA-Public Use
  Company Number: US-009507513-1402USA004683

PATIENT
  Age: 34 Year
  Sex: Female
  Weight: 64.85 kg

DRUGS (1)
  1. NUVARING [Suspect]
     Indication: CONTRACEPTION
     Dosage: AS DIRECTED
     Route: 067
     Dates: start: 201109, end: 201309

REACTIONS (2)
  - Oestradiol decreased [Recovered/Resolved]
  - Amenorrhoea [Unknown]
